FAERS Safety Report 6735342-8 (Version None)
Quarter: 2010Q2

REPORT INFORMATION
  Report Type: 
  Country: None (occurrence: None)
  Receive Date: 20100520
  Receipt Date: 20100520
  Transmission Date: 20101027
  Serious: Yes (Disabling)
  Sender: FDA-Public Use
  Company Number: None

PATIENT
  Age: 70 Year
  Sex: Female
  Weight: 72.1219 kg

DRUGS (1)
  1. CIPROFLOXACIN [Suspect]
     Dosage: 500 (1 TAB) EVERY 12 HRS BY MOUTH
     Route: 048
     Dates: start: 20091223

REACTIONS (9)
  - ARTHRALGIA [None]
  - ARTHROPATHY [None]
  - CONTUSION [None]
  - DRUG EFFECT DECREASED [None]
  - FATIGUE [None]
  - JOINT SWELLING [None]
  - SKIN EXFOLIATION [None]
  - SWELLING [None]
  - TENDON DISORDER [None]
